FAERS Safety Report 7742558-0 (Version None)
Quarter: 2011Q3

REPORT INFORMATION
  Report Type: 
  Country: None (occurrence: None)
  Receive Date: 20110912
  Receipt Date: 20110830
  Transmission Date: 20111222
  Serious: Yes (Hospitalization)
  Sender: FDA-Public Use
  Company Number: US-BAYER-2011-028216

PATIENT
  Age: 30 Year
  Sex: Female
  Weight: 86 kg

DRUGS (10)
  1. YAZ [Suspect]
     Indication: PREMENSTRUAL SYNDROME
  2. YASMIN [Suspect]
     Indication: CONTRACEPTION
     Dosage: UNK UNK, QD
     Route: 048
     Dates: start: 20080101, end: 20090901
  3. FERROUS SULFATE TAB [Concomitant]
     Dosage: UNK
     Dates: start: 20030101
  4. PERCOCET [Concomitant]
     Dosage: UNK
     Dates: start: 20070101
  5. VITAMIN B12 [Concomitant]
     Dosage: UNK
     Dates: start: 20030101
  6. YAZ [Suspect]
     Indication: ACNE
  7. YAZ [Suspect]
     Indication: CONTRACEPTION
     Dosage: UNK, QD
     Route: 048
     Dates: start: 20080101, end: 20090901
  8. YASMIN [Suspect]
     Indication: ACNE
  9. YASMIN [Suspect]
     Indication: PREMENSTRUAL SYNDROME
  10. ZOFRAN [Concomitant]
     Dosage: UNK
     Dates: start: 20030101

REACTIONS (6)
  - EMOTIONAL DISTRESS [None]
  - INTRACRANIAL ANEURYSM [None]
  - ANXIETY [None]
  - PAIN [None]
  - INJURY [None]
  - GENERAL PHYSICAL HEALTH DETERIORATION [None]
